FAERS Safety Report 7162512-X (Version None)
Quarter: 2010Q4

REPORT INFORMATION
  Report Type: 
  Country: None (occurrence: None)
  Receive Date: 20101215
  Receipt Date: 20101213
  Transmission Date: 20110411
  Serious: Yes (Other)
  Sender: FDA-Public Use
  Company Number: ES-ROCHE-747759

PATIENT
  Age: 58 Year
  Sex: Female

DRUGS (2)
  1. AVASTIN [Suspect]
     Indication: RENAL CANCER
     Route: 042
     Dates: start: 20100812, end: 20100923
  2. AVASTIN [Suspect]
     Route: 042
     Dates: start: 20101021

REACTIONS (1)
  - HAEMOLYTIC TRANSFUSION REACTION [None]
